FAERS Safety Report 4754417-6 (Version None)
Quarter: 2005Q3

REPORT INFORMATION
  Report Type: 
  Country: None (occurrence: None)
  Receive Date: 20050829
  Receipt Date: 20030101
  Transmission Date: 20060218
  Serious: Yes (Disabling)
  Sender: FDA-Public Use
  Company Number: DE-BOEHRINGER INGELHEIM PHARMACEUTICALS, INC.-2005-DE-03412DE

PATIENT
  Sex: Male

DRUGS (6)
  1. SPIRIVA [Suspect]
     Indication: OBSTRUCTIVE AIRWAYS DISORDER
     Route: 055
     Dates: start: 20021119
  2. SPIRIVA [Suspect]
     Indication: EMPHYSEMA
  3. BERODUAL LS [Suspect]
     Indication: OBSTRUCTIVE AIRWAYS DISORDER
     Route: 055
  4. BERODUAL LS [Suspect]
     Indication: EMPHYSEMA
  5. BEPANTHEN [Concomitant]
  6. SOLUTION FOR INHALATION [Concomitant]
     Dosage: 4ML 2-3X/DAY
     Route: 055

REACTIONS (3)
  - CHRONIC OBSTRUCTIVE PULMONARY DISEASE [None]
  - COUGH [None]
  - SPUTUM RETENTION [None]
